FAERS Safety Report 6968346-0 (Version None)
Quarter: 2010Q3

REPORT INFORMATION
  Report Type: 
  Country: None (occurrence: None)
  Receive Date: 20100901
  Receipt Date: 20100212
  Transmission Date: 20110219
  Serious: Yes (Hospitalization)
  Sender: FDA-Public Use
  Company Number: 2010SP009218

PATIENT
  Age: 31 Year
  Sex: Female
  Weight: 59.8748 kg

DRUGS (1)
  1. NUVARING [Suspect]
     Indication: CONTRACEPTION
     Dates: start: 20030101, end: 20080301

REACTIONS (18)
  - ABNORMAL BEHAVIOUR [None]
  - CHOLELITHIASIS [None]
  - DRUG EXPOSURE DURING PREGNANCY [None]
  - FALL [None]
  - FIBROUS DYSPLASIA OF BONE [None]
  - MUSCULOSKELETAL CHEST PAIN [None]
  - NASOPHARYNGITIS [None]
  - PNEUMONIA [None]
  - PREGNANCY [None]
  - PRURITUS [None]
  - PULMONARY EMBOLISM [None]
  - PULMONARY INFARCTION [None]
  - PYELONEPHRITIS [None]
  - RESPIRATORY ARREST [None]
  - SCREAMING [None]
  - SICKLE CELL ANAEMIA WITH CRISIS [None]
  - SPLENIC CALCIFICATION [None]
  - URINARY TRACT INFECTION [None]
